FAERS Safety Report 6437499-5 (Version None)
Quarter: 2009Q4

REPORT INFORMATION
  Report Type: 
  Country: None (occurrence: None)
  Receive Date: 20091112
  Receipt Date: 20091102
  Transmission Date: 20100525
  Serious: Yes (Life-Threatening, Other)
  Sender: FDA-Public Use
  Company Number: GB-ELI_LILLY_AND_COMPANY-GB200907004955

PATIENT
  Sex: Female

DRUGS (6)
  1. ZYPREXA [Suspect]
     Indication: PSYCHOTIC DISORDER
     Dosage: 5 MG, DAILY (1/D)
     Route: 064
     Dates: start: 20090306, end: 20090323
  2. ZYPREXA [Suspect]
     Dosage: 15 MG, DAILY (1/D)
     Route: 064
     Dates: start: 20090324, end: 20090101
  3. ZYPREXA [Suspect]
     Dosage: 10 MG, DAILY (1/D)
     Route: 064
     Dates: start: 20090101
  4. ZYPREXA [Suspect]
     Dosage: 10 MG, DAILY (1/D)
     Route: 063
     Dates: start: 20090517
  5. LOFEPRAMINE [Concomitant]
     Indication: DEPRESSION
     Dosage: 140 MG, UNK
     Route: 064
     Dates: start: 20090209
  6. LOFEPRAMINE [Concomitant]
     Route: 063
     Dates: start: 20090517

REACTIONS (6)
  - DRUG EXPOSURE DURING PREGNANCY [None]
  - DRUG EXPOSURE VIA BREAST MILK [None]
  - FOETAL MACROSOMIA [None]
  - POLYHYDRAMNIOS [None]
  - POOR SUCKING REFLEX [None]
  - WEIGHT DECREASED [None]
